FAERS Safety Report 24890124 (Version 1)
Quarter: 2025Q1

REPORT INFORMATION
  Report Type: Spontaneous
  Country: US (occurrence: None)
  Receive Date: 20250124
  Receipt Date: 20250124
  Transmission Date: 20250409
  Serious: Yes (Hospitalization)
  Sender: FDA-CTU
  Company Number: None

PATIENT
  Age: 68 Year
  Sex: Female

DRUGS (8)
  1. TACROLIMUS [Suspect]
     Active Substance: TACROLIMUS
     Indication: Renal transplant
     Dosage: 2 MG TWICE A DAY ORAL ?
     Route: 048
     Dates: start: 20240619
  2. ASPIRIN [Concomitant]
     Active Substance: ASPIRIN
     Dates: start: 20240619
  3. ENTECAVIR [Concomitant]
     Active Substance: ENTECAVIR
     Dates: start: 20240619
  4. Mycophenolic acid 180mg DR [Concomitant]
     Dates: start: 20240619, end: 20240919
  5. PREDNISONE [Concomitant]
     Active Substance: PREDNISONE
     Dates: start: 20240619
  6. SULFAMETHOXAZOLE\TRIMETHOPRIM [Concomitant]
     Active Substance: SULFAMETHOXAZOLE\TRIMETHOPRIM
     Dates: start: 20240619, end: 20241221
  7. VALGANCICLOVIR HYDROCHLORIDE [Concomitant]
     Active Substance: VALGANCICLOVIR HYDROCHLORIDE
     Dates: start: 20240619, end: 20241221
  8. TACROLIMUS [Concomitant]
     Active Substance: TACROLIMUS
     Dates: start: 20240727, end: 20240827

REACTIONS (1)
  - Urinary tract infection [None]

NARRATIVE: CASE EVENT DATE: 20250114
